FAERS Safety Report 9313525 (Version 1)
Quarter: 2013Q2

REPORT INFORMATION
  Report Type: Spontaneous
  Country: NL (occurrence: NL)
  Receive Date: 20130528
  Receipt Date: 20130528
  Transmission Date: 20140414
  Serious: Yes (Death, Life-Threatening, Hospitalization)
  Sender: FDA-Public Use
  Company Number: PHHY2013NL052777

PATIENT
  Sex: Female

DRUGS (3)
  1. CYPROTERONE ACETATE+ETHINYLESTRADIOL [Suspect]
     Indication: CONTRACEPTION
  2. PARACETAMOL [Concomitant]
  3. EPOETIN ALFA [Concomitant]

REACTIONS (6)
  - Pulmonary embolism [Fatal]
  - Dyspnoea [Fatal]
  - Circulatory collapse [Unknown]
  - Supraventricular tachycardia [Unknown]
  - Cardiac arrest [Unknown]
  - Bradycardia [Unknown]
